FAERS Safety Report 17866057 (Version 1)
Quarter: 2020Q2

REPORT INFORMATION
  Report Type: Report from Study
  Country: CA (occurrence: CA)
  Receive Date: 20200605
  Receipt Date: 20200605
  Transmission Date: 20200714
  Serious: Yes (Hospitalization)
  Sender: FDA-Public Use
  Company Number: CA-TAKEDA-2020TUS024971

PATIENT
  Age: 54 Year
  Sex: Female

DRUGS (6)
  1. VEDOLIZUMAB [Suspect]
     Active Substance: VEDOLIZUMAB
     Indication: CROHN^S DISEASE
     Dosage: 300 MILLIGRAM
     Route: 042
     Dates: start: 20180212
  2. VALSARTAN. [Concomitant]
     Active Substance: VALSARTAN
     Dosage: 80 MILLIGRAM
  3. CARVEDILOL. [Concomitant]
     Active Substance: CARVEDILOL
     Dosage: 25 MILLIGRAM, BID
  4. RESTASIS [Concomitant]
     Active Substance: CYCLOSPORINE
     Indication: UVEITIS
     Dosage: UNK
  5. SPIRONOLACTONE TEVA [Concomitant]
     Active Substance: SPIRONOLACTONE
     Dosage: 25 MILLIGRAM
  6. FUROSEMIDE. [Concomitant]
     Active Substance: FUROSEMIDE
     Dosage: 20 MILLIGRAM

REACTIONS (1)
  - Crohn^s disease [Unknown]
